FAERS Safety Report 6228935-8 (Version None)
Quarter: 2009Q2

REPORT INFORMATION
  Report Type: 
  Country: None (occurrence: None)
  Receive Date: 20090615
  Receipt Date: 20090603
  Transmission Date: 20091009
  Serious: Yes (Other)
  Sender: FDA-Public Use
  Company Number: GB-ROCHE-627339

PATIENT
  Sex: Male
  Weight: 85 kg

DRUGS (4)
  1. PEG-INTERFERON ALFA 2A (RO 25-8310) [Suspect]
     Indication: HEPATITIS C
     Route: 058
     Dates: start: 20080702, end: 20090414
  2. COPEGUS [Suspect]
     Indication: HEPATITIS C
     Route: 048
     Dates: start: 20080702, end: 20090414
  3. PERINDOPRIL ERBUMINE [Concomitant]
     Dosage: REPORTED AS PERINOPRIL
  4. BENDROFLUAZIDE [Concomitant]

REACTIONS (2)
  - CONVULSION [None]
  - COUGH [None]
